FAERS Safety Report 23777105 (Version 1)
Quarter: 2024Q2

REPORT INFORMATION
  Report Type: Report from Study
  Country: CA (occurrence: CA)
  Receive Date: 20240424
  Receipt Date: 20240424
  Transmission Date: 20240716
  Serious: Yes (Other)
  Sender: FDA-Public Use
  Company Number: CA-002147023-NVSC2024CA085140

PATIENT
  Age: 65 Year
  Sex: Male

DRUGS (1)
  1. COSENTYX [Suspect]
     Active Substance: SECUKINUMAB
     Indication: Ankylosing spondylitis
     Dosage: 150 MG, Q2W
     Route: 058
     Dates: start: 20211221

REACTIONS (4)
  - Immunosuppression [Unknown]
  - Mouth ulceration [Unknown]
  - Tongue ulceration [Unknown]
  - Product use issue [Unknown]

NARRATIVE: CASE EVENT DATE: 20211221
